FAERS Safety Report 18981774 (Version 4)
Quarter: 2024Q4

REPORT INFORMATION
  Report Type: Spontaneous
  Country: US (occurrence: US)
  Receive Date: 20210308
  Receipt Date: 20241218
  Transmission Date: 20250115
  Serious: No
  Sender: PFIZER
  Company Number: US-PFIZER INC-2021156603

PATIENT
  Age: 71 Year
  Sex: Female

DRUGS (1)
  1. XELJANZ XR [Suspect]
     Active Substance: TOFACITINIB CITRATE
     Indication: Seronegative arthritis
     Dosage: 11 MG
     Route: 048

REACTIONS (4)
  - Psychomotor hyperactivity [Unknown]
  - Pharyngeal disorder [Unknown]
  - Nervousness [Unknown]
  - Tongue biting [Unknown]
